FAERS Safety Report 4969214-6 (Version None)
Quarter: 2006Q2

REPORT INFORMATION
  Report Type: 
  Country: None (occurrence: None)
  Receive Date: 20060405
  Receipt Date: 20060322
  Transmission Date: 20061013
  Serious: Yes (Hospitalization, Other)
  Sender: FDA-Public Use
  Company Number: MEDI-0003859

PATIENT
  Age: 53 Year
  Sex: Male

DRUGS (11)
  1. ETHYOL [Suspect]
     Indication: CHEMOTHERAPY
     Dosage: 500 MG, SUBCUTANEOUS
     Route: 058
     Dates: start: 20050830, end: 20051003
  2. ETHYOL [Suspect]
     Indication: RADIOTHERAPY
     Dosage: 500 MG, SUBCUTANEOUS
     Route: 058
     Dates: start: 20050830, end: 20051003
  3. CISPLATIN [Concomitant]
  4. RADIATION THERAPY [Concomitant]
  5. ALOXI [Concomitant]
  6. ARANESP [Concomitant]
  7. DECADRON [Concomitant]
  8. MANNITOL [Concomitant]
  9. POTASSIUM (POTASSIUM) [Concomitant]
  10. MAGNESIUM SULFATE [Concomitant]
  11. LASIX [Concomitant]

REACTIONS (4)
  - ERYTHEMA MULTIFORME [None]
  - MALAISE [None]
  - PHARYNGOLARYNGEAL PAIN [None]
  - TOXIC EPIDERMAL NECROLYSIS [None]
